FAERS Safety Report 21140686 (Version 1)
Quarter: 2022Q3

REPORT INFORMATION
  Report Type: Spontaneous
  Country: DE (occurrence: DE)
  Receive Date: 20220728
  Receipt Date: 20220728
  Transmission Date: 20221027
  Serious: Yes (Other)
  Sender: FDA-Public Use
  Company Number: DE-TEVA-2022-DE-2056984

PATIENT
  Age: 81 Year
  Sex: Female

DRUGS (3)
  1. DIAZEPAM [Suspect]
     Active Substance: DIAZEPAM
     Indication: Product used for unknown indication
     Dosage: (TWO TABLETS AT A TIME IN THE EVENING) FOR OVER 20 YEARS
     Route: 065
  2. DIAZEPAM [Suspect]
     Active Substance: DIAZEPAM
     Dosage: IN THE EVENING
     Route: 065
  3. CARBAMAZEPINE [Suspect]
     Active Substance: CARBAMAZEPINE
     Indication: Product used for unknown indication
     Route: 065

REACTIONS (4)
  - Polyneuropathy [Unknown]
  - Epilepsy [Unknown]
  - Gait disturbance [Unknown]
  - Fall [Unknown]
